FAERS Safety Report 8990281 (Version 1)
Quarter: 2012Q4

REPORT INFORMATION
  Report Type: 
  Country: BR (occurrence: BR)
  Receive Date: 20121228
  Receipt Date: 20121228
  Transmission Date: 20130627
  Serious: Yes (Hospitalization)
  Sender: FDA-Public Use
  Company Number: BR-NOVOPROD-367879

PATIENT
  Weight: 4 kg

DRUGS (3)
  1. NOVORAPID FLEXPEN [Suspect]
     Indication: GESTATIONAL DIABETES
     Dosage: 3 U, qd
     Route: 064
  2. NOVORAPID FLEXPEN [Suspect]
     Dosage: 6 U, qd
     Route: 064
  3. NOVORAPID FLEXPEN [Suspect]
     Dosage: 22 U, qd
     Route: 064

REACTIONS (3)
  - Large for dates baby [Unknown]
  - Dyspnoea [Unknown]
  - Foetal exposure during pregnancy [Recovered/Resolved]
